FAERS Safety Report 12221002 (Version 1)
Quarter: 2016Q1

REPORT INFORMATION
  Report Type: Spontaneous
  Country: US (occurrence: None)
  Receive Date: 20160329
  Receipt Date: 20160329
  Transmission Date: 20160526
  Serious: No
  Sender: FDA-Public Use
  Company Number: None

PATIENT
  Age: 67 Year
  Sex: Female
  Weight: 65.77 kg

DRUGS (1)
  1. CLOPIDOGREL [Suspect]
     Active Substance: CLOPIDOGREL BISULFATE
     Indication: CEREBROVASCULAR ACCIDENT
     Dosage: 30 TABLET(S) ONCE A DAY TAKEN BY MOUTH
     Route: 048
     Dates: start: 20160322, end: 20160326

REACTIONS (3)
  - Therapy cessation [None]
  - Rash pruritic [None]
  - Rash generalised [None]

NARRATIVE: CASE EVENT DATE: 20160326
